FAERS Safety Report 8355708-2 (Version None)
Quarter: 2012Q2

REPORT INFORMATION
  Report Type: 
  Country: None (occurrence: None)
  Receive Date: 20120510
  Receipt Date: 20120508
  Transmission Date: 20120825
  Serious: Yes (Hospitalization, Other)
  Sender: FDA-Public Use
  Company Number: ADR-2006-3275

PATIENT
  Sex: Female

DRUGS (11)
  1. KLONOPIN [Concomitant]
  2. VANCOMYCIN [Concomitant]
  3. LIORESAL [Suspect]
     Indication: MUSCLE SPASTICITY
     Dosage: 500 MCG, DAILY, INTRATH
     Route: 037
  4. COPAXONE [Concomitant]
  5. AMITRIPTYLINE HCL [Concomitant]
  6. SYNTHROID [Concomitant]
  7. NEURONTIN [Concomitant]
  8. BACLOFEN [Concomitant]
  9. CEFTRIAXONE SODIUM [Concomitant]
  10. OAL [Concomitant]
  11. TOPROL-XL [Concomitant]

REACTIONS (24)
  - CSF GLUCOSE ABNORMAL [None]
  - HEADACHE [None]
  - CHILLS [None]
  - DRUG EFFECT DECREASED [None]
  - PYREXIA [None]
  - FALL [None]
  - ALLERGY TO CHEMICALS [None]
  - NAUSEA [None]
  - MUSCULOSKELETAL STIFFNESS [None]
  - GAIT DISTURBANCE [None]
  - HYPERHIDROSIS [None]
  - MENINGITIS [None]
  - COLD SWEAT [None]
  - CSF WHITE BLOOD CELL COUNT INCREASED [None]
  - ASTHENIA [None]
  - DRUG HYPERSENSITIVITY [None]
  - CSF TEST ABNORMAL [None]
  - CSF CELL COUNT INCREASED [None]
  - PHOTOSENSITIVITY REACTION [None]
  - MUSCLE SPASTICITY [None]
  - UNEVALUABLE EVENT [None]
  - DECREASED APPETITE [None]
  - MUSCLE SPASMS [None]
  - DRUG WITHDRAWAL SYNDROME [None]
